FAERS Safety Report 6817863-2 (Version None)
Quarter: 2010Q3

REPORT INFORMATION
  Report Type: 
  Country: None (occurrence: None)
  Receive Date: 20100706
  Receipt Date: 20100625
  Transmission Date: 20110219
  Serious: Yes (Life-Threatening, Hospitalization)
  Sender: FDA-Public Use
  Company Number: JP-MERCK-1005USA02585

PATIENT
  Age: 88 Year
  Sex: Female
  Weight: 34 kg

DRUGS (11)
  1. HYZAAR [Suspect]
     Indication: HYPERTENSION
     Route: 048
     Dates: start: 20100201, end: 20100506
  2. MEVALOTIN [Suspect]
     Indication: HYPERLIPIDAEMIA
     Route: 048
     Dates: end: 20100506
  3. ATELEC [Concomitant]
     Indication: HYPERTENSION
     Route: 048
     Dates: start: 20100201, end: 20100506
  4. LASIX [Concomitant]
     Indication: CARDIAC FAILURE
     Route: 048
     Dates: end: 20100506
  5. SIGMART [Concomitant]
     Indication: ANGINA PECTORIS
     Route: 048
     Dates: end: 20100506
  6. ASPIRIN [Concomitant]
     Indication: ANGINA PECTORIS
     Route: 048
     Dates: end: 20100506
  7. ADALAT [Concomitant]
     Indication: ANGINA PECTORIS
     Route: 048
     Dates: end: 20100506
  8. FRANDOL TAPE S [Concomitant]
     Indication: ANGINA PECTORIS
     Route: 065
     Dates: end: 20100506
  9. TAKEPRON [Concomitant]
     Indication: GASTRIC ULCER
     Route: 048
     Dates: end: 20100506
  10. MAGMITT [Concomitant]
     Indication: CONSTIPATION
     Route: 048
     Dates: end: 20100506
  11. DIART [Concomitant]
     Indication: CARDIAC FAILURE
     Route: 048
     Dates: end: 20100506

REACTIONS (3)
  - DECREASED APPETITE [None]
  - RENAL FAILURE ACUTE [None]
  - RHABDOMYOLYSIS [None]
